FAERS Safety Report 7832885-0 (Version None)
Quarter: 2011Q4

REPORT INFORMATION
  Report Type: 
  Country: None (occurrence: None)
  Receive Date: 20111024
  Receipt Date: 20111012
  Transmission Date: 20120403
  Serious: Yes (Congenital Anomaly)
  Sender: FDA-Public Use
  Company Number: TR-ELI_LILLY_AND_COMPANY-TR201110003460

PATIENT

DRUGS (4)
  1. HUMULIN N [Suspect]
     Indication: DIABETES MELLITUS
     Dosage: UNK
     Route: 015
     Dates: start: 20100801, end: 20110119
  2. HUMULIN N [Suspect]
     Dosage: UNK
     Route: 015
     Dates: start: 20100801, end: 20110119
  3. ALFAMET [Concomitant]
     Dosage: UNK
     Route: 015
     Dates: end: 20110119
  4. ALFAMET [Concomitant]
     Dosage: UNK
     Route: 015
     Dates: end: 20110119

REACTIONS (3)
  - MATERNAL EXPOSURE DURING PREGNANCY [None]
  - CONGENITAL HAND MALFORMATION [None]
  - LIMB MALFORMATION [None]
